FAERS Safety Report 21255581 (Version 1)
Quarter: 2022Q3

REPORT INFORMATION
  Report Type: Spontaneous
  Country: AU (occurrence: AU)
  Receive Date: 20220825
  Receipt Date: 20220825
  Transmission Date: 20221027
  Serious: No
  Sender: FDA-Public Use
  Company Number: AU-009507513-2208AUS006234

PATIENT
  Age: 78 Year
  Sex: Female

DRUGS (2)
  1. LAGEVRIO [Suspect]
     Active Substance: MOLNUPIRAVIR
     Dosage: UNK
     Route: 048
     Dates: start: 20220801, end: 20220806
  2. LAGEVRIO [Suspect]
     Active Substance: MOLNUPIRAVIR
     Dosage: UNK
     Dates: start: 202208

REACTIONS (1)
  - Product prescribing issue [Unknown]
